FAERS Safety Report 17883927 (Version 3)
Quarter: 2021Q3

REPORT INFORMATION
  Report Type: Spontaneous
  Country: US (occurrence: US)
  Receive Date: 20200611
  Receipt Date: 20210823
  Transmission Date: 20211014
  Serious: Yes (Death, Other)
  Sender: FDA-Public Use
  Company Number: US-SA-2020SA149681

PATIENT
  Age: 62 Year
  Sex: Male

DRUGS (1)
  1. ZANTAC [Suspect]
     Active Substance: RANITIDINE HYDROCHLORIDE
     Dosage: UNK
     Dates: start: 2000

REACTIONS (9)
  - Hepatic steatosis [Unknown]
  - Ascites [Unknown]
  - Abdominal pain upper [Unknown]
  - Injury [Unknown]
  - Anxiety [Unknown]
  - Pain [Unknown]
  - Hepatic cancer [Fatal]
  - Emotional distress [Unknown]
  - Biliary dyskinesia [Unknown]

NARRATIVE: CASE EVENT DATE: 20181026
